FAERS Safety Report 5173148-4 (Version None)
Quarter: 2006Q4

REPORT INFORMATION
  Report Type: 
  Country: None (occurrence: None)
  Receive Date: 20061207
  Receipt Date: 20061207
  Transmission Date: 20070319
  Serious: Yes (Other)
  Sender: FDA-Public Use
  Company Number: None

PATIENT
  Age: 10 Year
  Sex: Male
  Weight: 31.7518 kg

DRUGS (2)
  1. WELLBUTRIN [Suspect]
     Indication: ATTENTION DEFICIT/HYPERACTIVITY DISORDER
     Dosage: 75 M.G. TWICE DAILY PO
     Route: 048
     Dates: start: 20060816, end: 20061122
  2. WELLBUTRIN [Suspect]
     Indication: BIPOLAR DISORDER
     Dosage: 75 M.G. TWICE DAILY PO
     Route: 048
     Dates: start: 20060816, end: 20061122

REACTIONS (4)
  - CHAPPED LIPS [None]
  - LIP DRY [None]
  - LIP HAEMORRHAGE [None]
  - TREMOR [None]
